FAERS Safety Report 7668065-1 (Version None)
Quarter: 2011Q3

REPORT INFORMATION
  Report Type: 
  Country: None (occurrence: None)
  Receive Date: 20110808
  Receipt Date: 20110803
  Transmission Date: 20111222
  Serious: No
  Sender: FDA-Public Use
  Company Number: US-PFIZER INC-2011177823

PATIENT
  Sex: Male

DRUGS (1)
  1. TIKOSYN [Suspect]
     Dosage: UNK

REACTIONS (5)
  - SKIN BURNING SENSATION [None]
  - PAIN [None]
  - FEELING ABNORMAL [None]
  - EAR PAIN [None]
  - HEAD DISCOMFORT [None]
